FAERS Safety Report 15949912 (Version 1)
Quarter: 2019Q1

REPORT INFORMATION
  Report Type: Report from Study
  Country: FR (occurrence: FR)
  Receive Date: 20190211
  Receipt Date: 20190211
  Transmission Date: 20190417
  Serious: Yes (Hospitalization, Other)
  Sender: FDA-Public Use
  Company Number: FR-JNJFOC-20190117814

PATIENT
  Age: 68 Year
  Sex: Male

DRUGS (9)
  1. ISOPTINE [Concomitant]
     Active Substance: VERAPAMIL HYDROCHLORIDE
     Indication: HYPERTENSION
     Route: 065
  2. INEGY [Concomitant]
     Active Substance: EZETIMIBE\SIMVASTATIN
     Indication: CARDIOVASCULAR DISORDER
     Dosage: 10/20MG
     Route: 065
  3. COLCHICINE. [Concomitant]
     Active Substance: COLCHICINE
     Indication: GOUT
     Route: 065
  4. STELARA [Suspect]
     Active Substance: USTEKINUMAB
     Indication: PSORIASIS
     Route: 058
     Dates: start: 20160907, end: 20161004
  5. COSENTYX [Concomitant]
     Active Substance: SECUKINUMAB
     Route: 058
     Dates: start: 20170117, end: 20170217
  6. STELARA [Suspect]
     Active Substance: USTEKINUMAB
     Indication: PSORIASIS
     Route: 058
     Dates: end: 201701
  7. STELARA [Suspect]
     Active Substance: USTEKINUMAB
     Indication: PSORIASIS
     Route: 058
     Dates: start: 20161004, end: 20161215
  8. TELMISARTAN. [Concomitant]
     Active Substance: TELMISARTAN
     Indication: HYPERTENSION
     Route: 065
  9. COSENTYX [Concomitant]
     Active Substance: SECUKINUMAB
     Route: 058
     Dates: start: 20170217, end: 201807

REACTIONS (13)
  - Diarrhoea [Unknown]
  - Pelvic haematoma [Unknown]
  - Acute coronary syndrome [Recovered/Resolved with Sequelae]
  - Pneumonia pneumococcal [Unknown]
  - Acute kidney injury [Unknown]
  - Lymphoedema [Unknown]
  - Gout [Unknown]
  - Acute pulmonary oedema [Recovered/Resolved with Sequelae]
  - Erysipelas [Unknown]
  - Respiratory acidosis [Unknown]
  - Genital burning sensation [Unknown]
  - Stasis dermatitis [Unknown]
  - Atrial fibrillation [Unknown]

NARRATIVE: CASE EVENT DATE: 2018
